FAERS Safety Report 24606060 (Version 1)
Quarter: 2024Q4

REPORT INFORMATION
  Report Type: Report from Study
  Country: ZA (occurrence: ZA)
  Receive Date: 20241112
  Receipt Date: 20241112
  Transmission Date: 20250114
  Serious: Yes (Disabling)
  Sender: ABBVIE
  Company Number: ZA-ABBVIE-5993672

PATIENT
  Age: 72 Year
  Sex: Male

DRUGS (1)
  1. BOTOX [Suspect]
     Active Substance: ONABOTULINUMTOXINA
     Indication: Blepharospasm
     Dosage: TIME INTERVAL: AS NECESSARY: EVERY 3 MONTHS, 50 U
     Route: 065
     Dates: start: 20230608

REACTIONS (5)
  - Visual impairment [Unknown]
  - Blepharospasm [Unknown]
  - Gait disturbance [Unknown]
  - Impaired driving ability [Unknown]
  - Social problem [Unknown]
